FAERS Safety Report 10388788 (Version 1)
Quarter: 2014Q1

REPORT INFORMATION
  Report Type: Spontaneous
  Country: US (occurrence: None)
  Receive Date: 20140306
  Receipt Date: 20140306
  Transmission Date: 20141002
  Serious: Yes (Hospitalization, Other)
  Sender: FDA-Public Use
  Company Number: 163-21880-13123508

PATIENT
  Age: 85 Year
  Sex: Female

DRUGS (8)
  1. REVLIMID (LENALIDOMIDE) (10 MILLIGRAM, CAPSULES) [Suspect]
     Indication: PLASMA CELL MYELOMA
     Route: 048
     Dates: start: 201311
  2. CLONAZEPAM [Concomitant]
  3. CLONIDINE HCL [Concomitant]
  4. DEXAMETHASONE [Concomitant]
  5. METOPROLOL TARTRATE [Concomitant]
  6. MULTIVITAMINS [Concomitant]
  7. NIFEDIPINE [Concomitant]
  8. VITAMIN C (ASCORBIC ACID) [Concomitant]

REACTIONS (3)
  - Pelvic fracture [None]
  - Fall [None]
  - Oedema peripheral [None]
